FAERS Safety Report 4632406-X (Version None)
Quarter: 2005Q2

REPORT INFORMATION
  Report Type: 
  Country: None (occurrence: None)
  Receive Date: 20050411
  Receipt Date: 20050331
  Transmission Date: 20051028
  Serious: Yes (Death)
  Sender: FDA-Public Use
  Company Number: NO-BRISTOL-MYERS SQUIBB COMPANY-12916409

PATIENT
  Age: 31 Year
  Sex: Male

DRUGS (5)
  1. CISPLATIN [Suspect]
     Indication: TESTIS CANCER
     Dates: start: 20040713, end: 20040718
  2. ETOPOSIDE [Suspect]
     Indication: TESTIS CANCER
     Dates: start: 20040713, end: 20040718
  3. BLEOMYCIN [Suspect]
     Indication: TESTIS CANCER
     Dates: start: 20040713, end: 20040718
  4. ZOFRAN [Concomitant]
  5. VIVAL [Concomitant]

REACTIONS (1)
  - MYOCARDIAL INFARCTION [None]
